FAERS Safety Report 25825453 (Version 1)
Quarter: 2025Q3

REPORT INFORMATION
  Report Type: Spontaneous
  Country: JP (occurrence: JP)
  Receive Date: 20250919
  Receipt Date: 20250919
  Transmission Date: 20251020
  Serious: Yes (Hospitalization)
  Sender: PFIZER
  Company Number: JP-PFIZER INC-PV202500112693

PATIENT
  Sex: Female

DRUGS (17)
  1. PAXLOVID [Interacting]
     Active Substance: NIRMATRELVIR\RITONAVIR
     Indication: COVID-19
  2. TACROLIMUS [Interacting]
     Active Substance: TACROLIMUS
     Indication: Prophylaxis against transplant rejection
  3. ALFACALCIDOL [Suspect]
     Active Substance: ALFACALCIDOL
  4. AMLODIPINE BESYLATE [Suspect]
     Active Substance: AMLODIPINE BESYLATE
     Route: 048
  5. ATOVAQUONE [Suspect]
     Active Substance: ATOVAQUONE
  6. BISOPROLOL FUMARATE [Suspect]
     Active Substance: BISOPROLOL FUMARATE
  7. CALCIUM POLYSTYRENE SULFONATE [Suspect]
     Active Substance: CALCIUM POLYSTYRENE SULFONATE
  8. CARBOCYSTEINE [Suspect]
     Active Substance: CARBOCYSTEINE
  9. EPRAZINONE HYDROCHLORIDE [Suspect]
     Active Substance: EPRAZINONE HYDROCHLORIDE
  10. MAGNESIUM OXIDE [Suspect]
     Active Substance: MAGNESIUM OXIDE
  11. MYCOPHENOLATE MOFETIL [Suspect]
     Active Substance: MYCOPHENOLATE MOFETIL
     Indication: Prophylaxis against transplant rejection
  12. POLAPREZINC [Suspect]
     Active Substance: POLAPREZINC
     Dosage: 1 DF, 2X/DAY AFTER BREAKFAST AND DINNER
  13. PREDNISOLONE [Suspect]
     Active Substance: PREDNISOLONE
     Indication: Prophylaxis against transplant rejection
  14. PREGABALIN [Suspect]
     Active Substance: PREGABALIN
     Route: 048
  15. RABEPRAZOLE SODIUM [Suspect]
     Active Substance: RABEPRAZOLE SODIUM
  16. TRANEXAMIC ACID [Suspect]
     Active Substance: TRANEXAMIC ACID
  17. PANTOTHENIC ACID [Suspect]
     Active Substance: PANTOTHENIC ACID

REACTIONS (2)
  - Drug interaction [Unknown]
  - Drug level increased [Unknown]
